FAERS Safety Report 15710373 (Version 1)
Quarter: 2018Q4

REPORT INFORMATION
  Report Type: Spontaneous
  Country: IT (occurrence: IT)
  Receive Date: 20181211
  Receipt Date: 20181211
  Transmission Date: 20190205
  Serious: Yes (Other)
  Sender: FDA-Public Use
  Company Number: IT-TELIGENT, INC-IGIL20180706

PATIENT
  Age: 54 Year
  Sex: Male

DRUGS (2)
  1. IBIFEN [Suspect]
     Active Substance: KETOPROFEN
     Indication: CHEST PAIN
     Dosage: 100/5 MG/ML
     Route: 042
     Dates: start: 20180630, end: 20180702
  2. ZANTAC [Suspect]
     Active Substance: RANITIDINE HYDROCHLORIDE
     Indication: GASTRIC ULCER
     Dosage: 50 MG/ 5 ML; 1 DOSAGE FORM
     Route: 042
     Dates: start: 20180630, end: 20180702

REACTIONS (5)
  - Dyspnoea [Recovering/Resolving]
  - Skin reaction [Recovering/Resolving]
  - Headache [Recovering/Resolving]
  - Drug hypersensitivity [Recovering/Resolving]
  - Migraine without aura [Recovering/Resolving]

NARRATIVE: CASE EVENT DATE: 20180630
